FAERS Safety Report 15587434 (Version 2)
Quarter: 2019Q1

REPORT INFORMATION
  Report Type: Spontaneous
  Country: US (occurrence: US)
  Receive Date: 20181105
  Receipt Date: 20190322
  Transmission Date: 20190417
  Serious: No
  Sender: FDA-Public Use
  Company Number: US-CELGENEUS-USA-20181100380

PATIENT
  Sex: Male

DRUGS (1)
  1. REVLIMID [Suspect]
     Active Substance: LENALIDOMIDE
     Indication: PLASMA CELL MYELOMA
     Dosage: 25 MILLIGRAM
     Route: 048
     Dates: start: 20180911

REACTIONS (5)
  - Diarrhoea [Unknown]
  - Discomfort [Unknown]
  - Ocular hyperaemia [Unknown]
  - Pruritus generalised [Unknown]
  - Headache [Unknown]

NARRATIVE: CASE EVENT DATE: 2018
